FAERS Safety Report 23217091 (Version 8)
Quarter: 2025Q2

REPORT INFORMATION
  Report Type: Spontaneous
  Country: CA (occurrence: CA)
  Receive Date: 20231122
  Receipt Date: 20250407
  Transmission Date: 20250717
  Serious: Yes (Death, Life-Threatening, Hospitalization, Other)
  Sender: SANDOZ
  Company Number: CA-002147023-NVSC2020CA169641

PATIENT
  Age: 72 Year
  Sex: Female
  Weight: 61 kg

DRUGS (153)
  1. LAMOTRIGINE [Suspect]
     Active Substance: LAMOTRIGINE
     Indication: Product used for unknown indication
     Dosage: 75 MG, QD (1 EVERY 1 DAYS)
     Route: 048
  2. LAMOTRIGINE [Suspect]
     Active Substance: LAMOTRIGINE
     Route: 065
  3. BUPROPION [Suspect]
     Active Substance: BUPROPION
     Indication: Product used for unknown indication
     Dosage: 150 MG, QD (1 EVERY 1 DAYS)
     Route: 048
  4. BUPROPION [Suspect]
     Active Substance: BUPROPION
     Dosage: 150 MG, QD (1 EVERY 1 DAYS)
     Route: 048
  5. BUPROPION [Suspect]
     Active Substance: BUPROPION
     Dosage: 150 MG, QD (1 EVERY 1 DAYS)
     Route: 048
  6. BUPROPION [Suspect]
     Active Substance: BUPROPION
     Dosage: 150 MG, QD (1 EVERY 1 DAYS)
     Route: 048
  7. BUPROPION [Suspect]
     Active Substance: BUPROPION
     Dosage: 150 MG, QD (1 EVERY 1 DAYS)
     Route: 048
  8. BUPROPION [Suspect]
     Active Substance: BUPROPION
     Dosage: 75 MG, QD (1 EVERY 1 DAYS)
     Route: 048
  9. BUPROPION [Suspect]
     Active Substance: BUPROPION
     Dosage: 75 MG, QD (1 EVERY 1 DAYS)
     Route: 048
  10. BUPROPION [Suspect]
     Active Substance: BUPROPION
     Route: 065
  11. BUPROPION [Suspect]
     Active Substance: BUPROPION
     Route: 065
  12. BUPROPION [Suspect]
     Active Substance: BUPROPION
     Route: 065
  13. BUPROPION HYDROCHLORIDE [Suspect]
     Active Substance: BUPROPION HYDROCHLORIDE
     Indication: Product used for unknown indication
     Dosage: 150 MG, QD (1 EVERY 1 DAYS)
     Route: 048
  14. BUPROPION HYDROCHLORIDE [Suspect]
     Active Substance: BUPROPION HYDROCHLORIDE
     Dosage: 150 MG, QD (1 EVERY 1 DAYS)
     Route: 048
  15. BUPROPION HYDROCHLORIDE [Suspect]
     Active Substance: BUPROPION HYDROCHLORIDE
     Dosage: 150 MG, QD
     Route: 048
  16. BUPROPION HYDROCHLORIDE [Suspect]
     Active Substance: BUPROPION HYDROCHLORIDE
     Dosage: 150 MG, QD
     Route: 048
  17. BUPROPION HYDROCHLORIDE [Suspect]
     Active Substance: BUPROPION HYDROCHLORIDE
     Dosage: 75 MG, QD
     Route: 048
  18. BUPROPION HYDROCHLORIDE [Suspect]
     Active Substance: BUPROPION HYDROCHLORIDE
     Route: 065
  19. BENZTROPINE [Suspect]
     Active Substance: BENZTROPINE
     Dosage: 0.5 MG, Q12H
     Route: 048
  20. BENZTROPINE [Suspect]
     Active Substance: BENZTROPINE
     Dosage: 0.5 MG, Q12H
     Route: 048
  21. BENZTROPINE [Suspect]
     Active Substance: BENZTROPINE
     Dosage: 0.5 MG, Q12H
     Route: 048
  22. BENZTROPINE [Suspect]
     Active Substance: BENZTROPINE
     Dosage: 0.5 MG, Q12H (1 EVERY 12 HOURS)
     Route: 048
  23. BENZTROPINE [Suspect]
     Active Substance: BENZTROPINE
     Dosage: 0.5 MG, BID (2 EVERY ONE DAYS)
     Route: 065
  24. BENZTROPINE [Suspect]
     Active Substance: BENZTROPINE
     Indication: Product used for unknown indication
     Route: 065
  25. BENZTROPINE [Suspect]
     Active Substance: BENZTROPINE
     Route: 065
  26. BENZTROPINE [Suspect]
     Active Substance: BENZTROPINE
     Route: 065
  27. BENZTROPINE [Suspect]
     Active Substance: BENZTROPINE
     Route: 065
  28. BENZTROPINE [Suspect]
     Active Substance: BENZTROPINE
     Dosage: 0.5 MG, 2 EVERY 1 DAYS
     Route: 048
  29. BENZTROPINE [Suspect]
     Active Substance: BENZTROPINE
     Indication: Product used for unknown indication
     Dosage: 0.5 MG, BID (2 EVERY 1 DAYS)
     Route: 048
  30. BENZTROPINE [Suspect]
     Active Substance: BENZTROPINE
     Route: 065
  31. BENZTROPINE [Suspect]
     Active Substance: BENZTROPINE
     Route: 065
  32. BENZTROPINE MESYLATE [Suspect]
     Active Substance: BENZTROPINE MESYLATE
     Dosage: 0.5 MG, Q12H (1 EVERY 12 HOURS)
     Route: 048
  33. BENZTROPINE MESYLATE [Suspect]
     Active Substance: BENZTROPINE MESYLATE
     Indication: Product used for unknown indication
     Dosage: 0.5 MG, BID (2 EVERY 1 DAYS)
     Route: 048
  34. BENZTROPINE MESYLATE [Suspect]
     Active Substance: BENZTROPINE MESYLATE
     Route: 065
  35. BENZTROPINE MESYLATE [Suspect]
     Active Substance: BENZTROPINE MESYLATE
     Indication: Product used for unknown indication
     Dosage: 0.5 MG, Q12H
     Route: 048
  36. BENZTROPINE MESYLATE [Suspect]
     Active Substance: BENZTROPINE MESYLATE
     Dosage: 0.5 MG, Q12H
     Route: 048
  37. BENZTROPINE MESYLATE [Suspect]
     Active Substance: BENZTROPINE MESYLATE
     Route: 048
  38. BISACODYL [Suspect]
     Active Substance: BISACODYL
     Route: 048
  39. BISACODYL [Suspect]
     Active Substance: BISACODYL
     Dosage: 150 MG, QD
     Route: 048
  40. BISACODYL [Suspect]
     Active Substance: BISACODYL
     Indication: Product used for unknown indication
     Route: 048
  41. BISACODYL [Suspect]
     Active Substance: BISACODYL
     Route: 048
  42. BISACODYL [Suspect]
     Active Substance: BISACODYL
     Route: 048
  43. BISACODYL [Suspect]
     Active Substance: BISACODYL
     Route: 065
  44. CLEARLAX [Suspect]
     Active Substance: POLYETHYLENE GLYCOL 3350
     Indication: Product used for unknown indication
     Dosage: 17 G, QD
     Route: 048
  45. CLEARLAX [Suspect]
     Active Substance: POLYETHYLENE GLYCOL 3350
     Dosage: 17 G, QD
     Route: 048
  46. CLEARLAX [Suspect]
     Active Substance: POLYETHYLENE GLYCOL 3350
     Dosage: 17 G, QD
     Route: 048
  47. CLEARLAX [Suspect]
     Active Substance: POLYETHYLENE GLYCOL 3350
     Dosage: 17 G, QD
     Route: 048
  48. CLEARLAX [Suspect]
     Active Substance: POLYETHYLENE GLYCOL 3350
     Dosage: 17 G, QD
     Route: 048
  49. CLEARLAX [Suspect]
     Active Substance: POLYETHYLENE GLYCOL 3350
     Route: 065
  50. CLONAZEPAM [Suspect]
     Active Substance: CLONAZEPAM
     Indication: Product used for unknown indication
     Route: 048
  51. CLONAZEPAM [Suspect]
     Active Substance: CLONAZEPAM
     Route: 048
  52. CLONAZEPAM [Suspect]
     Active Substance: CLONAZEPAM
     Route: 065
  53. CONJUGATED ESTROGENS [Suspect]
     Active Substance: ESTROGENS, CONJUGATED
     Indication: Product used for unknown indication
     Dosage: 0.625 MG, QD
     Route: 067
  54. CONJUGATED ESTROGENS [Suspect]
     Active Substance: ESTROGENS, CONJUGATED
     Route: 065
  55. FLOVENT HFA [Suspect]
     Active Substance: FLUTICASONE PROPIONATE
     Dosage: 250 MG, BID (2 EVERY 1 DAYS)
     Route: 050
  56. FLOVENT HFA [Suspect]
     Active Substance: FLUTICASONE PROPIONATE
     Dosage: 250 MG, BID (1 EVERY .5 DAYS)
     Route: 055
  57. FLOVENT HFA [Suspect]
     Active Substance: FLUTICASONE PROPIONATE
     Dosage: 250 UG, BID (1 EVERY .5 DAYS)
     Route: 055
  58. FLOVENT HFA [Suspect]
     Active Substance: FLUTICASONE PROPIONATE
     Dosage: 250 UG, QD (1 EVERY 1 DAYS
     Route: 055
  59. FLOVENT HFA [Suspect]
     Active Substance: FLUTICASONE PROPIONATE
     Dosage: 250 UG, BID (2 EVERY 1 DAYS)
     Route: 050
  60. FLOVENT HFA [Suspect]
     Active Substance: FLUTICASONE PROPIONATE
     Indication: Product used for unknown indication
     Dosage: 250 UG, BID (METERED DOSE (AEROSOL)) (2 EVERY 1 DAYS)
     Route: 055
  61. FLOVENT HFA [Suspect]
     Active Substance: FLUTICASONE PROPIONATE
     Dosage: 500 MG, QD
     Route: 055
  62. FLOVENT HFA [Suspect]
     Active Substance: FLUTICASONE PROPIONATE
     Dosage: 500 MG, QD
     Route: 055
  63. FLOVENT HFA [Suspect]
     Active Substance: FLUTICASONE PROPIONATE
     Dosage: 500 MG, QD (METERED-DOSE (AEROSOL))
     Route: 055
  64. FLOVENT HFA [Suspect]
     Active Substance: FLUTICASONE PROPIONATE
     Dosage: 500 UG, QD (1 EVERY 1 DAYS)
     Route: 055
  65. FLOVENT HFA [Suspect]
     Active Substance: FLUTICASONE PROPIONATE
     Route: 055
  66. FLOVENT HFA [Suspect]
     Active Substance: FLUTICASONE PROPIONATE
     Route: 065
  67. FLUTICASONE PROPIONATE [Suspect]
     Active Substance: FLUTICASONE PROPIONATE
     Indication: Product used for unknown indication
     Dosage: 250 MG, QD
     Route: 055
  68. FLUTICASONE PROPIONATE [Suspect]
     Active Substance: FLUTICASONE PROPIONATE
     Dosage: 250 MG, QD
     Route: 055
  69. FLUTICASONE PROPIONATE [Suspect]
     Active Substance: FLUTICASONE PROPIONATE
     Dosage: 250 UG, QD
     Route: 055
  70. FLUTICASONE PROPIONATE [Suspect]
     Active Substance: FLUTICASONE PROPIONATE
     Dosage: 500 MG, QD
     Route: 055
  71. FLUTICASONE PROPIONATE [Suspect]
     Active Substance: FLUTICASONE PROPIONATE
     Dosage: 500 MG, QD
     Route: 055
  72. FLUTICASONE PROPIONATE [Suspect]
     Active Substance: FLUTICASONE PROPIONATE
     Dosage: 500 MG, QD
     Route: 055
  73. FLUTICASONE PROPIONATE [Suspect]
     Active Substance: FLUTICASONE PROPIONATE
     Dosage: 500 MG, Q12H
     Route: 055
  74. FLUTICASONE PROPIONATE [Suspect]
     Active Substance: FLUTICASONE PROPIONATE
     Dosage: 500 UG, Q12H
     Route: 055
  75. LANSOPRAZOLE [Suspect]
     Active Substance: LANSOPRAZOLE
     Dosage: 30 MG, Q12H
     Route: 065
  76. LANSOPRAZOLE [Suspect]
     Active Substance: LANSOPRAZOLE
     Indication: Product used for unknown indication
     Dosage: 30 MG, BID (1 EVERY .5 DAYS)
     Route: 048
  77. LEVOTHYROXINE SODIUM [Suspect]
     Active Substance: LEVOTHYROXINE SODIUM
     Indication: Product used for unknown indication
     Dosage: 125 MG, QD (1 EVERY 1 DAYS)
     Route: 048
  78. LEVOTHYROXINE SODIUM [Suspect]
     Active Substance: LEVOTHYROXINE SODIUM
     Dosage: 125 MG, QD (1 EVERY 1 DAYS)
     Route: 048
  79. LEVOTHYROXINE SODIUM [Suspect]
     Active Substance: LEVOTHYROXINE SODIUM
     Dosage: 125 MG, QD (1 EVERY 1 DAYS)
     Route: 048
  80. LEVOTHYROXINE SODIUM [Suspect]
     Active Substance: LEVOTHYROXINE SODIUM
     Dosage: 125 UG, QD (1 EVERY 1 DAYS)
     Route: 048
  81. LEVOTHYROXINE SODIUM [Suspect]
     Active Substance: LEVOTHYROXINE SODIUM
     Indication: Product used for unknown indication
     Dosage: 125 UG, QD (1 EVERY 1 DAYS) SYNTHROID
     Route: 048
  82. LEVOTHYROXINE SODIUM [Suspect]
     Active Substance: LEVOTHYROXINE SODIUM
     Route: 065
  83. LEVOTHYROXINE SODIUM [Suspect]
     Active Substance: LEVOTHYROXINE SODIUM
     Route: 065
  84. LEVOTHYROXINE SODIUM [Suspect]
     Active Substance: LEVOTHYROXINE SODIUM
     Route: 065
  85. LAMOTRIGINE [Suspect]
     Active Substance: LAMOTRIGINE
     Dosage: 75 MG, QD (1 EVERY 1 DAYS)
     Route: 048
  86. LAMOTRIGINE [Suspect]
     Active Substance: LAMOTRIGINE
     Dosage: 75 MG, QD (1 EVERY 1 DAYS)
     Route: 048
  87. LAMOTRIGINE [Suspect]
     Active Substance: LAMOTRIGINE
     Dosage: 75 MG, QD (1 EVERY 1 DAYS)
     Route: 048
  88. LAMOTRIGINE [Suspect]
     Active Substance: LAMOTRIGINE
     Dosage: 75 MG, QD
     Route: 065
  89. LAMOTRIGINE [Suspect]
     Active Substance: LAMOTRIGINE
     Indication: Product used for unknown indication
     Route: 065
  90. LAMOTRIGINE [Suspect]
     Active Substance: LAMOTRIGINE
     Route: 065
  91. LAMOTRIGINE [Suspect]
     Active Substance: LAMOTRIGINE
     Route: 065
  92. LANSOPRAZOLE [Suspect]
     Active Substance: LANSOPRAZOLE
     Dosage: 30 MG, Q12H
     Route: 048
  93. LANSOPRAZOLE [Suspect]
     Active Substance: LANSOPRAZOLE
     Dosage: 30 MG, Q12H
     Route: 048
  94. LANSOPRAZOLE [Suspect]
     Active Substance: LANSOPRAZOLE
     Indication: Product used for unknown indication
     Route: 065
  95. LANSOPRAZOLE [Suspect]
     Active Substance: LANSOPRAZOLE
     Route: 065
  96. LINACLOTIDE [Suspect]
     Active Substance: LINACLOTIDE
     Dosage: 145 MG, QD
     Route: 048
  97. LINACLOTIDE [Suspect]
     Active Substance: LINACLOTIDE
     Dosage: 145 MG, QD
     Route: 048
  98. LINACLOTIDE [Suspect]
     Active Substance: LINACLOTIDE
     Dosage: 145 UG, QD  (1 EVERY 1 DAYS)
     Route: 048
  99. LINACLOTIDE [Suspect]
     Active Substance: LINACLOTIDE
     Indication: Irritable bowel syndrome
     Route: 065
  100. POLYETHYLENE GLYCOLS [Suspect]
     Active Substance: POLYETHYLENE GLYCOLS
     Dosage: 17 G, QD
     Route: 048
  101. POLYETHYLENE GLYCOLS [Suspect]
     Active Substance: POLYETHYLENE GLYCOLS
     Dosage: 17 G, QD
     Route: 065
  102. POLYETHYLENE GLYCOLS [Suspect]
     Active Substance: POLYETHYLENE GLYCOLS
     Indication: Product used for unknown indication
     Dosage: 17 MG, QD
     Route: 048
  103. POLYETHYLENE GLYCOLS [Suspect]
     Active Substance: POLYETHYLENE GLYCOLS
     Dosage: 17 MG, QD
     Route: 048
  104. POLYETHYLENE GLYCOLS [Suspect]
     Active Substance: POLYETHYLENE GLYCOLS
     Route: 065
  105. POLYETHYLENE GLYCOLS [Suspect]
     Active Substance: POLYETHYLENE GLYCOLS
     Route: 065
  106. POLYETHYLENE GLYCOL 3350 [Suspect]
     Active Substance: POLYETHYLENE GLYCOL 3350
     Indication: Product used for unknown indication
     Dosage: 17 G, QD  (1 EVERY 1 DAYS)
     Route: 048
  107. POLYETHYLENE GLYCOL 3350 [Suspect]
     Active Substance: POLYETHYLENE GLYCOL 3350
     Dosage: 17 G, QD  (1 EVERY 1 DAYS)
     Route: 048
  108. POLYETHYLENE GLYCOL 3350 [Suspect]
     Active Substance: POLYETHYLENE GLYCOL 3350
     Dosage: 17 G, QD  (1 EVERY 1 DAYS)
     Route: 048
  109. POLYETHYLENE GLYCOL 3350 [Suspect]
     Active Substance: POLYETHYLENE GLYCOL 3350
     Route: 065
  110. POLYETHYLENE GLYCOL 3350 [Suspect]
     Active Substance: POLYETHYLENE GLYCOL 3350
     Route: 065
  111. MELATONIN [Suspect]
     Active Substance: MELATONIN
     Indication: Product used for unknown indication
     Dosage: 3.0 MG, QD (1 EVERY 1 DAYS)
     Route: 060
  112. MELATONIN [Suspect]
     Active Substance: MELATONIN
     Route: 065
  113. ONDANSETRON [Suspect]
     Active Substance: ONDANSETRON
     Indication: Product used for unknown indication
     Route: 060
  114. ONDANSETRON [Suspect]
     Active Substance: ONDANSETRON
     Route: 060
  115. ONDANSETRON [Suspect]
     Active Substance: ONDANSETRON
     Route: 060
  116. ONDANSETRON [Suspect]
     Active Substance: ONDANSETRON
     Route: 060
  117. ONDANSETRON [Suspect]
     Active Substance: ONDANSETRON
     Route: 060
  118. ONDANSETRON [Suspect]
     Active Substance: ONDANSETRON
     Route: 060
  119. ONDANSETRON [Suspect]
     Active Substance: ONDANSETRON
     Route: 065
  120. ONDANSETRON HYDROCHLORIDE [Suspect]
     Active Substance: ONDANSETRON HYDROCHLORIDE
     Indication: Product used for unknown indication
     Route: 060
  121. ONDANSETRON HYDROCHLORIDE [Suspect]
     Active Substance: ONDANSETRON HYDROCHLORIDE
     Route: 065
  122. POTASSIUM CHLORIDE [Suspect]
     Active Substance: POTASSIUM CHLORIDE
     Dosage: 1 DF, Q12H
     Route: 048
  123. POTASSIUM CHLORIDE [Suspect]
     Active Substance: POTASSIUM CHLORIDE
     Dosage: 1 DF, Q12H
     Route: 048
  124. POTASSIUM CHLORIDE [Suspect]
     Active Substance: POTASSIUM CHLORIDE
     Dosage: 1 DF, Q12H
     Route: 048
  125. POTASSIUM CHLORIDE [Suspect]
     Active Substance: POTASSIUM CHLORIDE
     Dosage: 1 DF, Q12H
     Route: 048
  126. POTASSIUM CHLORIDE [Suspect]
     Active Substance: POTASSIUM CHLORIDE
     Indication: Product used for unknown indication
     Dosage: 1 DOSAGE FORM, BID (2 EVERY 1 DAYS)
     Route: 065
  127. POTASSIUM CHLORIDE [Suspect]
     Active Substance: POTASSIUM CHLORIDE
     Dosage: 2 DOSAGE FORM, QD (1 EVERY 1 DAYS)
     Route: 048
  128. POTASSIUM CHLORIDE [Suspect]
     Active Substance: POTASSIUM CHLORIDE
     Dosage: 2 DOSAGE FORM, BID (2 EVERY 1 DAYS)
     Route: 048
  129. POTASSIUM CHLORIDE [Suspect]
     Active Substance: POTASSIUM CHLORIDE
     Route: 048
  130. POTASSIUM CHLORIDE [Suspect]
     Active Substance: POTASSIUM CHLORIDE
     Route: 065
  131. POTASSIUM CHLORIDE [Suspect]
     Active Substance: POTASSIUM CHLORIDE
     Route: 065
  132. POLYETHYLENE GLYCOL 3350 [Suspect]
     Active Substance: POLYETHYLENE GLYCOL 3350
     Dosage: 17 MG, QD
     Route: 048
  133. POLYETHYLENE GLYCOL 3350 [Suspect]
     Active Substance: POLYETHYLENE GLYCOL 3350
     Indication: Product used for unknown indication
     Dosage: 17 MG, QD
     Route: 065
  134. PREMARIN [Suspect]
     Active Substance: ESTROGENS, CONJUGATED
     Indication: Product used for unknown indication
     Dosage: 0.625 MG, QD (1 EVERY 1 DAYS)
     Route: 067
  135. PREMARIN [Suspect]
     Active Substance: ESTROGENS, CONJUGATED
     Route: 065
  136. PREVACID [Suspect]
     Active Substance: LANSOPRAZOLE
     Dosage: 30 MG, Q12H (EVERY 12 HOURS)
     Route: 048
  137. PREVACID [Suspect]
     Active Substance: LANSOPRAZOLE
     Dosage: 30 MG, Q12H (EVERY 12 HOURS)
     Route: 048
  138. PREVACID [Suspect]
     Active Substance: LANSOPRAZOLE
     Indication: Product used for unknown indication
     Dosage: 30 MG, BID (2 EVERY 1 DAYS)
     Route: 048
  139. PREVACID [Suspect]
     Active Substance: LANSOPRAZOLE
     Route: 065
  140. PREVACID [Suspect]
     Active Substance: LANSOPRAZOLE
     Route: 065
  141. SODIUM CITRATE [Suspect]
     Active Substance: SODIUM CITRATE
     Indication: Product used for unknown indication
     Route: 054
  142. SODIUM CITRATE [Suspect]
     Active Substance: SODIUM CITRATE
     Route: 065
  143. SODIUM CITRATE\SODIUM LAURYL SULFOACETATE [Suspect]
     Active Substance: SODIUM CITRATE\SODIUM LAURYL SULFOACETATE
     Indication: Product used for unknown indication
     Route: 054
  144. SODIUM CITRATE\SODIUM LAURYL SULFOACETATE [Suspect]
     Active Substance: SODIUM CITRATE\SODIUM LAURYL SULFOACETATE
     Route: 065
  145. SODIUM CITRATE\SODIUM LAURYL SULFOACETATE [Suspect]
     Active Substance: SODIUM CITRATE\SODIUM LAURYL SULFOACETATE
     Route: 065
  146. SODIUM LAURYL SULFOACETATE [Suspect]
     Active Substance: SODIUM LAURYL SULFOACETATE
     Route: 054
  147. SODIUM LAURYL SULFOACETATE [Suspect]
     Active Substance: SODIUM LAURYL SULFOACETATE
     Indication: Product used for unknown indication
     Route: 065
  148. SODIUM PHOSPHATE, DIBASIC [Suspect]
     Active Substance: SODIUM PHOSPHATE, DIBASIC
     Indication: Product used for unknown indication
     Dosage: 17 G, QD
     Route: 048
  149. ZOFRAN [Suspect]
     Active Substance: ONDANSETRON HYDROCHLORIDE
     Indication: Product used for unknown indication
     Route: 060
  150. ZOFRAN [Suspect]
     Active Substance: ONDANSETRON HYDROCHLORIDE
     Route: 060
  151. ZOFRAN [Suspect]
     Active Substance: ONDANSETRON HYDROCHLORIDE
     Route: 060
  152. NASONEX [Concomitant]
     Active Substance: MOMETASONE FUROATE
     Indication: Product used for unknown indication
     Route: 065
  153. POTASSIUM CHLORIDE [Concomitant]
     Active Substance: POTASSIUM CHLORIDE
     Indication: Product used for unknown indication
     Route: 065

REACTIONS (2)
  - Cardiac arrest [Fatal]
  - Death [Fatal]
